FAERS Safety Report 4315311-8 (Version None)
Quarter: 2004Q1

REPORT INFORMATION
  Report Type: 
  Country: None (occurrence: None)
  Receive Date: 20040309
  Receipt Date: 20040225
  Transmission Date: 20041129
  Serious: No
  Sender: FDA-Public Use
  Company Number: 04P-122-0251998-00

PATIENT
  Age: 65 Year
  Sex: Female

DRUGS (6)
  1. HUMIRA [Suspect]
     Indication: CONDITION AGGRAVATED
  2. HUMIRA [Suspect]
     Indication: RHEUMATOID ARTHRITIS
  3. MELOXICAM [Concomitant]
  4. DOXAZOSIN MESYLATE [Concomitant]
  5. METHOTREXATE [Concomitant]
  6. PREDNISOLONE [Concomitant]

REACTIONS (2)
  - OEDEMA PERIPHERAL [None]
  - TACHYPNOEA [None]
